FAERS Safety Report 4796875-7 (Version None)
Quarter: 2005Q4

REPORT INFORMATION
  Report Type: 
  Country: None (occurrence: None)
  Receive Date: 20051006
  Receipt Date: 20051006
  Transmission Date: 20060501
  Serious: Yes (Life-Threatening, Hospitalization)
  Sender: FDA-Public Use
  Company Number: None

PATIENT
  Age: 78 Year
  Sex: Male
  Weight: 81 kg

DRUGS (12)
  1. TRIAMTERENE AND HYDROCHLOROTHIAZIDE [Suspect]
     Indication: HYPERTENSION
     Dosage: 37.5 / 25 MG PO QD
     Route: 048
     Dates: start: 20041126, end: 20041213
  2. IBUPROFEN [Concomitant]
  3. SSI [Concomitant]
  4. GLYBURIDE [Concomitant]
  5. GLIPIZIDE [Concomitant]
  6. LEVOFLOXACIN [Concomitant]
  7. CLINDAMYCIN [Concomitant]
  8. METOPROLOL [Concomitant]
  9. MITEZAPINE [Concomitant]
  10. METFORMIN [Concomitant]
  11. QUITIAPINE [Concomitant]
  12. METOCLOPRAMIDE [Concomitant]

REACTIONS (1)
  - RENAL FAILURE ACUTE [None]
